FAERS Safety Report 4792646-6 (Version None)
Quarter: 2005Q4

REPORT INFORMATION
  Report Type: 
  Country: None (occurrence: None)
  Receive Date: 20051010
  Receipt Date: 20050928
  Transmission Date: 20060501
  Serious: Yes (Other)
  Sender: FDA-Public Use
  Company Number: PHBS2005KR14340

PATIENT
  Sex: Female
  Weight: 1 kg

DRUGS (2)
  1. BROMOCRIPTINE MESYLATE [Suspect]
     Route: 064
  2. CLOMIPHENE [Suspect]
     Route: 064

REACTIONS (4)
  - APGAR SCORE LOW [None]
  - DRUG EXPOSURE DURING PREGNANCY [None]
  - PREMATURE BABY [None]
  - STILLBIRTH [None]
